FAERS Safety Report 21856796 (Version 1)
Quarter: 2023Q1

REPORT INFORMATION
  Report Type: Report from Study
  Country: IE (occurrence: IE)
  Receive Date: 20230113
  Receipt Date: 20230113
  Transmission Date: 20230417
  Serious: Yes (Other)
  Sender: FDA-Public Use
  Company Number: IE-JNJFOC-20221114072

PATIENT
  Age: 51 Year
  Sex: Male

DRUGS (4)
  1. TREMFYA [Suspect]
     Active Substance: GUSELKUMAB
     Indication: Psoriatic arthropathy
     Route: 058
     Dates: start: 20220531
  2. ARAVA [Concomitant]
     Active Substance: LEFLUNOMIDE
  3. CARBOMER [Concomitant]
     Active Substance: CARBOMER
  4. ASPIRIN [Concomitant]
     Active Substance: ASPIRIN

REACTIONS (2)
  - Knee arthroplasty [Not Recovered/Not Resolved]
  - Nasal congestion [Unknown]
